FAERS Safety Report 7255439-6 (Version None)
Quarter: 2011Q1

REPORT INFORMATION
  Report Type: 
  Country: None (occurrence: None)
  Receive Date: 20110129
  Receipt Date: 20100308
  Transmission Date: 20110831
  Serious: No
  Sender: FDA-Public Use
  Company Number: US-ABBOTT-10P-163-0630782-00

PATIENT
  Age: 35 Year
  Sex: Female

DRUGS (6)
  1. HUMIRA [Suspect]
     Indication: RHEUMATOID ARTHRITIS
     Dates: start: 20050101, end: 20050101
  2. MUSCLE RELAXER [Concomitant]
     Indication: ARTHRALGIA
  3. PLAQUENIL [Concomitant]
     Indication: RHEUMATOID ARTHRITIS
  4. HUMIRA [Suspect]
     Dates: start: 20100201
  5. HUMIRA [Suspect]
     Indication: RHEUMATOID ARTHRITIS
     Dates: start: 20050101, end: 20100101
  6. VOLTAREN [Concomitant]
     Indication: ARTHRALGIA

REACTIONS (4)
  - ARTHRITIS [None]
  - IMMUNODEFICIENCY [None]
  - SINUSITIS [None]
  - INJECTION SITE PAIN [None]
